FAERS Safety Report 8437148-0 (Version None)
Quarter: 2012Q2

REPORT INFORMATION
  Report Type: 
  Country: None (occurrence: None)
  Receive Date: 20120614
  Receipt Date: 20120417
  Transmission Date: 20120825
  Serious: No
  Sender: FDA-Public Use
  Company Number: US-AMGEN-USASP2012024396

PATIENT
  Age: 65 Year
  Sex: Female

DRUGS (9)
  1. SIMVASTATIN [Concomitant]
     Dosage: UNK
  2. SYNTHROID [Concomitant]
     Dosage: UNK
  3. PROLIA [Suspect]
     Indication: OSTEOPOROSIS POSTMENOPAUSAL
     Dosage: 60 MG, Q6MO
  4. CALCIUM [Concomitant]
     Dosage: UNK
  5. COENZYME Q10 [Concomitant]
     Dosage: UNK
  6. PLAVIX [Concomitant]
     Dosage: UNK
  7. LOSARTAN POTASSIUM [Concomitant]
     Dosage: UNK
  8. VITAMINS NOS [Concomitant]
     Dosage: UNK
  9. MULTI-VITAMINS [Concomitant]
     Dosage: UNK

REACTIONS (2)
  - JOINT CREPITATION [None]
  - TOOTHACHE [None]
